FAERS Safety Report 4494187-2 (Version None)
Quarter: 2004Q4

REPORT INFORMATION
  Report Type: 
  Country: None (occurrence: None)
  Receive Date: 20041102
  Receipt Date: 20041014
  Transmission Date: 20050328
  Serious: Yes (Death, Hospitalization)
  Sender: FDA-Public Use
  Company Number: JP_041004870

PATIENT
  Age: 83 Year
  Sex: Male
  Weight: 51 kg

DRUGS (3)
  1. ONCOVIN [Suspect]
     Indication: FACTOR VIII INHIBITION
     Dosage: 1.5 MG OTHER
     Dates: start: 20020425
  2. CYCLOPHOSPHAMIDE [Concomitant]
  3. PREDNISOLONE [Concomitant]

REACTIONS (15)
  - BLOOD BETA-D-GLUCAN INCREASED [None]
  - CHEST X-RAY ABNORMAL [None]
  - CYTOMEGALOVIRUS ANTIGEN POSITIVE [None]
  - CYTOMEGALOVIRUS COLITIS [None]
  - DYSPNOEA [None]
  - HAEMARTHROSIS [None]
  - HAEMATOCHEZIA [None]
  - HAEMORRHAGE SUBCUTANEOUS [None]
  - HYPERGLYCAEMIA [None]
  - HYPOXIA [None]
  - MELAENA [None]
  - OPPORTUNISTIC INFECTION [None]
  - PNEUMOCYSTIS CARINII PNEUMONIA [None]
  - RECTAL HAEMORRHAGE [None]
  - RECTAL ULCER [None]
